FAERS Safety Report 26125433 (Version 1)
Quarter: 2025Q4

REPORT INFORMATION
  Report Type: Spontaneous
  Country: US (occurrence: US)
  Receive Date: 20251205
  Receipt Date: 20251205
  Transmission Date: 20260117
  Serious: No
  Sender: BAUSCH AND LOMB
  Company Number: US-BAUSCHBL-2025BNL032837

PATIENT
  Age: 53 Year
  Sex: Female

DRUGS (4)
  1. BLINK NOURISH DRY EYE [Suspect]
     Active Substance: GLYCERIN
     Indication: Dry eye
     Dosage: USED 1 DROP IN EACH EYE
     Route: 047
  2. BLINK NOURISH DRY EYE [Suspect]
     Active Substance: GLYCERIN
  3. MIEBO [Suspect]
     Active Substance: PERFLUOROHEXYLOCTANE
     Indication: Product used for unknown indication
     Route: 047
  4. XIIDRA [Suspect]
     Active Substance: LIFITEGRAST
     Indication: Product used for unknown indication
     Route: 047

REACTIONS (1)
  - Eye pain [Recovered/Resolved]
